FAERS Safety Report 7383335-2 (Version None)
Quarter: 2011Q1

REPORT INFORMATION
  Report Type: 
  Country: None (occurrence: None)
  Receive Date: 20110330
  Receipt Date: 20110316
  Transmission Date: 20110831
  Serious: Yes (Hospitalization)
  Sender: FDA-Public Use
  Company Number: FR-JNJFOC-20110309957

PATIENT
  Sex: Male

DRUGS (7)
  1. SERETIDE [Concomitant]
  2. TOPLEXIL (GUAIFENESIN, OXOMEMAZINE) [Concomitant]
  3. ACETAMINOPHEN AND TRAMADOL HCL [Suspect]
     Indication: PAIN
     Dosage: AS NEEDED UP TO 6X
     Route: 048
  4. VENTOLIN [Concomitant]
  5. CANNABIS [Concomitant]
  6. RULID [Concomitant]
  7. PREDNISOLONE [Concomitant]

REACTIONS (1)
  - PANCREATITIS RELAPSING [None]
